FAERS Safety Report 4279996-7 (Version None)
Quarter: 2004Q1

REPORT INFORMATION
  Report Type: 
  Country: None (occurrence: None)
  Receive Date: 20040121
  Receipt Date: 20040105
  Transmission Date: 20041129
  Serious: Yes (Hospitalization)
  Sender: FDA-Public Use
  Company Number: F01200400015

PATIENT
  Age: 52 Year
  Sex: Female

DRUGS (3)
  1. (OXALIPLATIN) - SOLUTION - 130 MG/M2 [Suspect]
     Indication: COLORECTAL CANCER
     Dosage: 130 MG/M2 Q3W
     Route: 042
     Dates: start: 20031222, end: 20031222
  2. CAPECITABINE 850 MG/M2 [Suspect]
     Dosage: 850 MG/M2 TWICE DAILY FROM D1 TO D15, Q3W
     Route: 048
     Dates: start: 20031222, end: 20031222
  3. AVASTIN [Suspect]
     Dosage: 7.5 MG/KG ON DAY 1 OVER 30-90 MINUES IV INFUSION, Q3W
     Route: 042
     Dates: start: 20031222, end: 20031222

REACTIONS (3)
  - DYSPHAGIA [None]
  - DYSPNOEA [None]
  - LARYNGOSPASM [None]
